FAERS Safety Report 7742393-3 (Version None)
Quarter: 2011Q3

REPORT INFORMATION
  Report Type: 
  Country: None (occurrence: None)
  Receive Date: 20110907
  Receipt Date: 20110907
  Transmission Date: 20111222
  Serious: Yes (Other)
  Sender: FDA-Public Use
  Company Number: None

PATIENT
  Sex: Female
  Weight: 98 kg

DRUGS (10)
  1. ZOFRAN [Concomitant]
  2. CYMBALTA [Concomitant]
  3. SYNTHROID [Concomitant]
  4. SUNITINIB MALATE [Suspect]
     Indication: RENAL CANCER METASTATIC
     Dosage: 37.5MG QD X4 EVERY 6WKS
     Dates: start: 20110803, end: 20110830
  5. MICARDIS [Concomitant]
  6. POTASSIUM CHLORIDE [Concomitant]
  7. RESTORIL [Concomitant]
  8. FLONASE [Concomitant]
  9. LASIX [Concomitant]
  10. NEXIUM [Concomitant]

REACTIONS (1)
  - BLOOD URIC ACID ABNORMAL [None]
